FAERS Safety Report 8191260-2 (Version None)
Quarter: 2012Q1

REPORT INFORMATION
  Report Type: 
  Country: None (occurrence: None)
  Receive Date: 20120307
  Receipt Date: 20120302
  Transmission Date: 20120608
  Serious: Yes (Hospitalization)
  Sender: FDA-Public Use
  Company Number: IT-AMGEN-ITACT2012013841

PATIENT
  Age: 68 Year
  Sex: Male
  Weight: 64 kg

DRUGS (7)
  1. ASPIRIN [Concomitant]
     Dosage: 15 MG, QD
     Dates: start: 20110623
  2. IRINOTECAN HCL [Concomitant]
     Indication: COLORECTAL CANCER METASTATIC
     Dosage: 282 MG, UNK
  3. LANSOPRAZOLE [Concomitant]
  4. LEUCOVORIN CALCIUM [Concomitant]
     Indication: COLORECTAL CANCER METASTATIC
     Dosage: 376 MG, UNK
  5. OXALIPLATIN [Concomitant]
     Indication: COLORECTAL CANCER METASTATIC
     Dosage: 160 MG, UNK
  6. PANITUMUMAB [Suspect]
     Indication: COLORECTAL CANCER METASTATIC
     Dosage: 456 MG, UNK
  7. FLUOROURACIL [Concomitant]
     Indication: COLORECTAL CANCER METASTATIC
     Dosage: 4510 MG, UNK

REACTIONS (7)
  - ANAEMIA [None]
  - NEUTROPENIA [None]
  - BLOOD POTASSIUM DECREASED [None]
  - STOMATITIS [None]
  - VOMITING [None]
  - ASTHENIA [None]
  - NAUSEA [None]
